FAERS Safety Report 24554245 (Version 1)
Quarter: 2024Q4

REPORT INFORMATION
  Report Type: Spontaneous
  Country: US (occurrence: None)
  Receive Date: 20241028
  Receipt Date: 20241028
  Transmission Date: 20250114
  Serious: Yes (Other)
  Sender: REDHILL BIOPHARMA INC.
  Company Number: US-RedHill Biopharma Inc.-RDH202410-000048

PATIENT
  Age: 80 Year
  Sex: Female
  Weight: 54.431 kg

DRUGS (2)
  1. TALICIA [Suspect]
     Active Substance: AMOXICILLIN\OMEPRAZOLE MAGNESIUM\RIFABUTIN
     Indication: Helicobacter infection
     Dosage: STRENGTH: 250MG-12.5MG-10 MG
     Route: 048
     Dates: start: 20240923, end: 20240926
  2. AMLODIPINE [Concomitant]
     Active Substance: AMLODIPINE BESYLATE
     Indication: Product used for unknown indication
     Route: 065

REACTIONS (2)
  - Syncope [Recovered/Resolved]
  - Dizziness [Recovered/Resolved]

NARRATIVE: CASE EVENT DATE: 20240926
